FAERS Safety Report 5237068-9 (Version None)
Quarter: 2007Q1

REPORT INFORMATION
  Report Type: 
  Country: None (occurrence: None)
  Receive Date: 20070209
  Receipt Date: 20070126
  Transmission Date: 20070707
  Serious: Yes (Death)
  Sender: FDA-Public Use
  Company Number: 2006S1011571

PATIENT
  Age: 54 Year
  Sex: Female
  Weight: 64.5 kg

DRUGS (1)
  1. FENTANYL TRANSDERMAL SYSTEM [Suspect]
     Indication: CANCER PAIN
     Dosage: TRANSDERMAL
     Route: 062
     Dates: end: 20050930

REACTIONS (3)
  - FEELING COLD [None]
  - HEAT EXPOSURE INJURY [None]
  - INCORRECT DRUG ADMINISTRATION RATE [None]
